FAERS Safety Report 8375873-0 (Version None)
Quarter: 2012Q1

REPORT INFORMATION
  Report Type: 
  Country: None (occurrence: None)
  Receive Date: 20120323
  Receipt Date: 20110711
  Transmission Date: 20120608
  Serious: Yes (Hospitalization)
  Sender: FDA-Public Use
  Company Number: 163-21880-11071170

PATIENT
  Age: 81 Year
  Sex: Male
  Weight: 80.7403 kg

DRUGS (6)
  1. REVLIMID [Suspect]
     Indication: MULTIPLE MYELOMA
     Dosage: 5 MG, DAILYX 21 DAYS, PO
     Route: 048
     Dates: start: 20110520
  2. AMLODIPINE [Concomitant]
  3. DEXAMETHASONE [Concomitant]
  4. NOVOLOG REGULAR (INSULIN ASPART) (INJECTION) [Concomitant]
  5. NOVOLOG 70/30 (INJECTION) [Concomitant]
  6. FRAGMIN [Concomitant]

REACTIONS (5)
  - THROMBOSIS [None]
  - JOINT RANGE OF MOTION DECREASED [None]
  - OEDEMA PERIPHERAL [None]
  - PRURITUS [None]
  - RASH [None]
